FAERS Safety Report 23929999 (Version 2)
Quarter: 2024Q4

REPORT INFORMATION
  Report Type: Spontaneous
  Country: TH (occurrence: TH)
  Receive Date: 20240601
  Receipt Date: 20241224
  Transmission Date: 20250114
  Serious: Yes (Hospitalization, Other)
  Sender: NOVARTIS
  Company Number: TH-002147023-NVSC2024TH109950

PATIENT
  Age: 90 Year
  Sex: Female

DRUGS (23)
  1. RIBOCICLIB [Suspect]
     Active Substance: RIBOCICLIB
     Indication: Breast cancer
     Dosage: UNK (1ST RIBOCICLIB)
     Route: 065
     Dates: start: 20220910
  2. RIBOCICLIB [Suspect]
     Active Substance: RIBOCICLIB
     Dosage: UNK (2ND RIBOCICLIB)
     Route: 065
     Dates: start: 20221015
  3. RIBOCICLIB [Suspect]
     Active Substance: RIBOCICLIB
     Dosage: 400 UNK
     Route: 065
     Dates: start: 20221024
  4. RIBOCICLIB [Suspect]
     Active Substance: RIBOCICLIB
     Dosage: 400 UNK
     Route: 065
     Dates: start: 20221114
  5. RIBOCICLIB [Suspect]
     Active Substance: RIBOCICLIB
     Dosage: 400 UNK
     Route: 065
     Dates: start: 20221129
  6. RIBOCICLIB [Suspect]
     Active Substance: RIBOCICLIB
     Dosage: 400 UNK
     Route: 065
     Dates: start: 20221217
  7. RIBOCICLIB [Suspect]
     Active Substance: RIBOCICLIB
     Dosage: 400 UNK
     Route: 065
     Dates: start: 20221226
  8. RIBOCICLIB [Suspect]
     Active Substance: RIBOCICLIB
     Dosage: 400 UNK
     Route: 065
     Dates: start: 20221230
  9. RIBOCICLIB [Suspect]
     Active Substance: RIBOCICLIB
     Dosage: 400 UNK
     Route: 065
     Dates: start: 20230114
  10. RIBOCICLIB [Suspect]
     Active Substance: RIBOCICLIB
     Dosage: UNK
     Route: 065
     Dates: start: 20230203
  11. LETROZOLE [Concomitant]
     Active Substance: LETROZOLE
     Indication: Product used for unknown indication
     Dosage: UNK
     Route: 065
  12. LOSARTAN [Concomitant]
     Active Substance: LOSARTAN
     Indication: Product used for unknown indication
     Dosage: 100 MG, QD
     Route: 065
  13. FUROSEMIDE [Concomitant]
     Active Substance: FUROSEMIDE
     Indication: Product used for unknown indication
     Dosage: 20 MG, QD
     Route: 065
  14. ATORVASTATIN [Concomitant]
     Active Substance: ATORVASTATIN
     Indication: Product used for unknown indication
     Dosage: 40 MG, QD
     Route: 065
  15. BISOPROLOL [Concomitant]
     Active Substance: BISOPROLOL
     Indication: Product used for unknown indication
     Dosage: 2.5 MG, QD
     Route: 065
  16. CLOPIDOGREL [Concomitant]
     Active Substance: CLOPIDOGREL BISULFATE
     Indication: Product used for unknown indication
     Dosage: 75 MG, QD
     Route: 065
  17. DAPAGLIFLOZIN [Concomitant]
     Active Substance: DAPAGLIFLOZIN
     Indication: Product used for unknown indication
     Dosage: 10 MG
     Route: 065
  18. LEVOTHYROXINE [Concomitant]
     Active Substance: LEVOTHYROXINE
     Indication: Product used for unknown indication
     Dosage: 50 UNK, QD (MCG)
     Route: 065
  19. ASPIRIN [Concomitant]
     Active Substance: ASPIRIN
     Indication: Product used for unknown indication
     Dosage: UNK
     Route: 065
  20. LINAGLIPTIN [Concomitant]
     Active Substance: LINAGLIPTIN
     Indication: Product used for unknown indication
     Dosage: UNK
     Route: 065
  21. SIMVASTATIN [Concomitant]
     Active Substance: SIMVASTATIN
     Indication: Product used for unknown indication
     Dosage: UNK
     Route: 065
  22. MANIDIPINE [Concomitant]
     Active Substance: MANIDIPINE
     Indication: Product used for unknown indication
     Dosage: UNK
     Route: 065
  23. METFORMIN [Concomitant]
     Active Substance: METFORMIN HYDROCHLORIDE
     Indication: Product used for unknown indication
     Dosage: 1000 MG (OD)
     Route: 065

REACTIONS (37)
  - Hyponatraemia [Unknown]
  - Hypovolaemia [Unknown]
  - Lactic acidosis [Unknown]
  - Acute kidney injury [Unknown]
  - Arrhythmia [Unknown]
  - Supraventricular tachycardia [Unknown]
  - Supraventricular tachycardia [Unknown]
  - Hypothyroidism [Unknown]
  - Cellulitis [Unknown]
  - Clostridium difficile colitis [Unknown]
  - Obstructive sleep apnoea syndrome [Unknown]
  - Erosive oesophagitis [Unknown]
  - Acute myocardial infarction [Unknown]
  - Ejection fraction decreased [Unknown]
  - Chest discomfort [Unknown]
  - Septic shock [Unknown]
  - Eastern Cooperative Oncology Group performance status [Not Recovered/Not Resolved]
  - Eastern Cooperative Oncology Group performance status [Unknown]
  - Breast cancer [Unknown]
  - Malignant neoplasm progression [Unknown]
  - Metastases to meninges [Unknown]
  - Metastases to liver [Unknown]
  - Metastases to central nervous system [Unknown]
  - Seizure [Unknown]
  - Coronary artery stenosis [Unknown]
  - Angina unstable [Unknown]
  - Pneumothorax [Unknown]
  - Metastases to pleura [Unknown]
  - Pneumonia [Unknown]
  - Eastern Cooperative Oncology Group performance status [Unknown]
  - Heart rate increased [Unknown]
  - Blood glucose fluctuation [Unknown]
  - White blood cell count decreased [Unknown]
  - Haematoma [Unknown]
  - Pleural effusion [Unknown]
  - Atelectasis [Unknown]
  - Pleural thickening [Unknown]

NARRATIVE: CASE EVENT DATE: 20220924
